FAERS Safety Report 18344699 (Version 2)
Quarter: 2020Q4

REPORT INFORMATION
  Report Type: Spontaneous
  Country: US (occurrence: US)
  Receive Date: 20201005
  Receipt Date: 20201013
  Transmission Date: 20210114
  Serious: No
  Sender: FDA-Public Use
  Company Number: US-MYLANLABS-2020M1083305

PATIENT
  Sex: Male
  Weight: 77 kg

DRUGS (2)
  1. WHISPERJECT? AUTOINJECTOR [Suspect]
     Active Substance: DEVICE
     Indication: CLINICALLY ISOLATED SYNDROME
     Dosage: UNK
  2. GLATIRAMER ACETATE INJECTION [Suspect]
     Active Substance: GLATIRAMER ACETATE
     Indication: CLINICALLY ISOLATED SYNDROME
     Dosage: 40 MILLIGRAM, 3XW
     Route: 058

REACTIONS (5)
  - Injection site extravasation [Recovered/Resolved]
  - Product quality issue [Not Recovered/Not Resolved]
  - Injection site pain [Recovered/Resolved]
  - Capillary fragility [Recovered/Resolved]
  - Device issue [Recovered/Resolved]
